FAERS Safety Report 17292813 (Version 1)
Quarter: 2020Q1

REPORT INFORMATION
  Report Type: Spontaneous
  Country: US (occurrence: US)
  Receive Date: 20200102
  Receipt Date: 20200102
  Transmission Date: 20200409
  Serious: No
  Sender: FDA-Public Use
  Company Number: None

PATIENT
  Age: 76 Year
  Sex: Female

DRUGS (7)
  1. ATORVASTATIN [Concomitant]
     Active Substance: ATORVASTATIN
  2. RANITIDINE. [Concomitant]
     Active Substance: RANITIDINE
  3. LEVOTHYROXIN [Concomitant]
     Active Substance: LEVOTHYROXINE
  4. CHOLESTYRAM [Concomitant]
     Active Substance: CHOLESTYRAMINE
  5. PRIMIDONE. [Concomitant]
     Active Substance: PRIMIDONE
  6. OCALIVA [Suspect]
     Active Substance: OBETICHOLIC ACID
     Indication: CHOLANGITIS
     Route: 048
     Dates: start: 20180710
  7. URSODIOL. [Concomitant]
     Active Substance: URSODIOL

REACTIONS (3)
  - Fatigue [None]
  - Pruritus [None]
  - Alopecia [None]

NARRATIVE: CASE EVENT DATE: 20191231
